FAERS Safety Report 6944961-5 (Version None)
Quarter: 2010Q3

REPORT INFORMATION
  Report Type: 
  Country: None (occurrence: None)
  Receive Date: 20100827
  Receipt Date: 20100823
  Transmission Date: 20110219
  Serious: Yes (Death, Life-Threatening)
  Sender: FDA-Public Use
  Company Number: FR-CELGENEUS-056-21880-10061236

PATIENT
  Sex: Female
  Weight: 33 kg

DRUGS (4)
  1. REVLIMID [Suspect]
     Route: 048
  2. REVLIMID [Suspect]
     Route: 048
     Dates: start: 20100507
  3. DAUNORUBICIN HCL [Suspect]
     Route: 065
     Dates: start: 20100507
  4. CYTARABINE [Suspect]
     Route: 065
     Dates: start: 20100507

REACTIONS (5)
  - ACUTE PULMONARY OEDEMA [None]
  - CARDIO-RESPIRATORY ARREST [None]
  - FEBRILE BONE MARROW APLASIA [None]
  - RENAL FAILURE ACUTE [None]
  - SEPSIS [None]
